FAERS Safety Report 7013226-8 (Version None)
Quarter: 2010Q3

REPORT INFORMATION
  Report Type: 
  Country: None (occurrence: None)
  Receive Date: 20100924
  Receipt Date: 20100916
  Transmission Date: 20110219
  Serious: Yes (Other)
  Sender: FDA-Public Use
  Company Number: CA-MERCK-1009USA03699

PATIENT
  Sex: Female

DRUGS (1)
  1. FOSAMAX PLUS D [Suspect]
     Route: 048

REACTIONS (13)
  - ABDOMINAL DISCOMFORT [None]
  - ARTHRALGIA [None]
  - BONE DENSITY DECREASED [None]
  - CONDITION AGGRAVATED [None]
  - FEELING ABNORMAL [None]
  - FLANK PAIN [None]
  - INSOMNIA [None]
  - MALAISE [None]
  - MOBILITY DECREASED [None]
  - MUSCULOSKELETAL DISCOMFORT [None]
  - PAIN IN EXTREMITY [None]
  - SENSATION OF PRESSURE [None]
  - WALKING AID USER [None]
